FAERS Safety Report 9733422 (Version 1)
Quarter: 2013Q4

REPORT INFORMATION
  Report Type: Spontaneous
  Country: US (occurrence: None)
  Receive Date: 20131204
  Receipt Date: 20131204
  Transmission Date: 20140711
  Serious: Yes (Other)
  Sender: FDA-Public Use
  Company Number: None

PATIENT
  Age: 74 Year
  Sex: Male
  Weight: 86.64 kg

DRUGS (5)
  1. LEVOFLOXACIN [Suspect]
     Indication: URINARY TRACT INFECTION
     Route: 048
     Dates: start: 20130907, end: 20130913
  2. GLIMEPIRIDE 2MG - 1 TAB TWICE PER DAY [Concomitant]
  3. METFORMIN 1000MG - 1 TAB TWICE PER DAY [Concomitant]
  4. SIMVASTATIN 40MG - 1 TAB NIGHTLY [Concomitant]
  5. ZOLPIDEM 10MG - 1 TAB AT BEDTIME [Concomitant]

REACTIONS (4)
  - Ageusia [None]
  - Weight decreased [None]
  - Malaise [None]
  - Decreased appetite [None]
